FAERS Safety Report 7304945-4 (Version None)
Quarter: 2011Q1

REPORT INFORMATION
  Report Type: 
  Country: None (occurrence: None)
  Receive Date: 20110222
  Receipt Date: 20110216
  Transmission Date: 20110831
  Serious: No
  Sender: FDA-Public Use
  Company Number: JP-SANOFI-AVENTIS-2010SA047656

PATIENT

DRUGS (1)
  1. LASIX [Suspect]
     Dosage: DOSAGE UNKNOWN
     Route: 048

REACTIONS (1)
  - DRUG ERUPTION [None]
